FAERS Safety Report 23884373 (Version 1)
Quarter: 2024Q2

REPORT INFORMATION
  Report Type: Spontaneous
  Country: US (occurrence: US)
  Receive Date: 20240522
  Receipt Date: 20240522
  Transmission Date: 20240716
  Serious: No
  Sender: FDA-Public Use
  Company Number: US-CATALYST PHARMACEUTICALS-US-CATA-24-00369

PATIENT
  Age: 9 Year
  Sex: Male
  Weight: 28.571 kg

DRUGS (9)
  1. AGAMREE [Suspect]
     Active Substance: VAMOROLONE
     Indication: Duchenne muscular dystrophy
     Dosage: 4.5 ML ONCE DAILY
     Route: 048
     Dates: start: 20240321
  2. ALBUTEROL [Concomitant]
     Active Substance: ALBUTEROL
     Indication: Bronchial hyperreactivity
     Dosage: 2 PUFFS IF NEEDED
     Route: 055
  3. ENALAPRIL [Concomitant]
     Active Substance: ENALAPRIL
     Indication: Cardiovascular event prophylaxis
     Dosage: 2.5 MG BY MOUTH TWICE DAILY
     Route: 048
  4. ENALAPRIL [Concomitant]
     Active Substance: ENALAPRIL
     Indication: Hypertension
  5. FAMOTIDINE [Concomitant]
     Active Substance: FAMOTIDINE
     Indication: Gastrointestinal disorder prophylaxis
     Dosage: 10 MG TWICE DAILY
     Route: 065
  6. FLONASE [Concomitant]
     Active Substance: FLUTICASONE PROPIONATE
     Indication: Bronchial hyperreactivity
     Dosage: 2 SPRAYS IN EACH NOSTRIL IF NEEDED
     Route: 045
  7. FOCALIN XR [Concomitant]
     Active Substance: DEXMETHYLPHENIDATE HYDROCHLORIDE
     Indication: Attention deficit hyperactivity disorder
     Dosage: 15 MG DAILY
     Route: 065
  8. IRON\VITAMINS [Concomitant]
     Active Substance: IRON\VITAMINS
     Indication: Hypovitaminosis
     Dosage: ONCE DAILY
     Route: 065
  9. VITAMIN D3 [Concomitant]
     Active Substance: CHOLECALCIFEROL
     Indication: Hypovitaminosis
     Dosage: 1000 IU DAILY
     Route: 065

REACTIONS (2)
  - Weight decreased [Unknown]
  - Overdose [Unknown]

NARRATIVE: CASE EVENT DATE: 20240425
